FAERS Safety Report 6664133-1 (Version None)
Quarter: 2010Q2

REPORT INFORMATION
  Report Type: 
  Country: None (occurrence: None)
  Receive Date: 20100401
  Receipt Date: 20100329
  Transmission Date: 20101027
  Serious: Yes (Other)
  Sender: FDA-Public Use
  Company Number: B0642690A

PATIENT
  Sex: Male

DRUGS (3)
  1. LAMBIPOL [Suspect]
     Indication: DRUG USE FOR UNKNOWN INDICATION
     Route: 065
     Dates: start: 20100201, end: 20100306
  2. SERLAIN [Concomitant]
  3. ZALDIAR [Concomitant]

REACTIONS (5)
  - HEADACHE [None]
  - HEPATITIS [None]
  - HEPATITIS FULMINANT [None]
  - NAUSEA [None]
  - VOMITING [None]
